FAERS Safety Report 4984915-1 (Version None)
Quarter: 2006Q2

REPORT INFORMATION
  Report Type: 
  Country: None (occurrence: None)
  Receive Date: 20060426
  Receipt Date: 20060426
  Transmission Date: 20061013
  Serious: Yes (Hospitalization)
  Sender: FDA-Public Use
  Company Number: None

PATIENT
  Age: 56 Year
  Sex: Male

DRUGS (2)
  1. SANCTURA [Suspect]
     Indication: URINARY INCONTINENCE
     Dosage: 20 MG BID PO
     Route: 048
     Dates: start: 20041215, end: 20050101
  2. IMIPRAMINE [Suspect]
     Dosage: 100 MG PO QD PO
     Route: 048

REACTIONS (2)
  - TACHYCARDIA [None]
  - URINARY RETENTION [None]
